FAERS Safety Report 19231002 (Version 1)
Quarter: 2021Q2

REPORT INFORMATION
  Report Type: Report from Study
  Country: US (occurrence: US)
  Receive Date: 20210507
  Receipt Date: 20210507
  Transmission Date: 20210717
  Serious: Yes (Hospitalization, Other)
  Sender: FDA-Public Use
  Company Number: US-GILEAD-2021-0527172

PATIENT
  Age: 62 Year
  Sex: Male

DRUGS (1)
  1. SOFOSBUVIR W/VELPATASVIR [Suspect]
     Active Substance: SOFOSBUVIR\VELPATASVIR
     Indication: HEPATITIS C
     Dosage: UNK UNK, QD
     Route: 048
     Dates: start: 20210424

REACTIONS (6)
  - Anaemia [Not Recovered/Not Resolved]
  - Hepatic cirrhosis [Not Recovered/Not Resolved]
  - Cardiovascular disorder [Not Recovered/Not Resolved]
  - Pain [Not Recovered/Not Resolved]
  - Testicular swelling [Not Recovered/Not Resolved]
  - Wound [Not Recovered/Not Resolved]

NARRATIVE: CASE EVENT DATE: 20210424
